FAERS Safety Report 9631983 (Version 3)
Quarter: 2016Q2

REPORT INFORMATION
  Report Type: Report from Study
  Country: CA (occurrence: CA)
  Receive Date: 20131018
  Receipt Date: 20160415
  Transmission Date: 20160815
  Serious: Yes (Hospitalization)
  Sender: FDA-Public Use
  Company Number: CA-JNJFOC-20131007019

PATIENT
  Age: 81 Year
  Sex: Male
  Weight: 53 kg

DRUGS (37)
  1. FINASTERIDE. [Concomitant]
     Active Substance: FINASTERIDE
     Dosage: AT 9 AM
     Route: 065
     Dates: start: 20131004
  2. IPRATROPIUM [Concomitant]
     Active Substance: IPRATROPIUM
     Route: 065
  3. ADVAIR HFA [Concomitant]
     Active Substance: FLUTICASONE PROPIONATE\SALMETEROL XINAFOATE
     Dosage: DOSE: 250 MDI (METERED DOSE INHALER), 2 PUFF, AT 9 AM AND 9 PM
     Route: 065
     Dates: start: 20131008
  4. REMICADE [Suspect]
     Active Substance: INFLIXIMAB
     Indication: COLITIS ULCERATIVE
     Dosage: 0,2,6 WEEK
     Route: 042
     Dates: start: 20131002
  5. ALVESCO [Concomitant]
     Active Substance: CICLESONIDE
     Route: 065
  6. VITAMIN B12 [Concomitant]
     Active Substance: CYANOCOBALAMIN
     Route: 065
  7. OMEGA-3 ACIDS [Concomitant]
     Active Substance: OMEGA-3 FATTY ACIDS
     Route: 065
  8. CENTRUM NOS [Concomitant]
     Route: 065
  9. ZOPICLONE [Concomitant]
     Active Substance: ZOPICLONE
     Dosage: AT BED TIME
     Route: 065
  10. LIPITOR [Concomitant]
     Active Substance: ATORVASTATIN CALCIUM
     Dosage: AT 9 AM
     Route: 065
     Dates: start: 20131004
  11. METOCLOPRAMIDE. [Concomitant]
     Active Substance: METOCLOPRAMIDE
     Dosage: AT 6 AM, 12 NOON, 6 PM AND MIDNIGHT
     Route: 065
     Dates: start: 20131009
  12. COQ10 [Concomitant]
     Active Substance: UBIDECARENONE
     Route: 065
  13. TIOTROPIUM BROMIDE [Concomitant]
     Active Substance: TIOTROPIUM BROMIDE
     Route: 065
  14. ALFUZOSIN [Concomitant]
     Active Substance: ALFUZOSIN
     Route: 065
  15. ALFUZOSIN [Concomitant]
     Active Substance: ALFUZOSIN
     Dosage: DAILY AT 9 AM
     Route: 065
     Dates: start: 20131004
  16. SYMBICORT [Concomitant]
     Active Substance: BUDESONIDE\FORMOTEROL FUMARATE DIHYDRATE
     Route: 065
  17. SALBUTAMOL [Concomitant]
     Active Substance: ALBUTEROL
     Dosage: 2 PUFF; EVERY 4 HOURS AT 2 AM, 6 AM, 10 AM, 2 PM, 6 PM AND 10 PM, AS NEEDED
     Route: 065
     Dates: start: 20131006
  18. CIPRALEX [Concomitant]
     Active Substance: ESCITALOPRAM OXALATE
     Route: 065
  19. OLANZAPINE. [Concomitant]
     Active Substance: OLANZAPINE
     Dosage: AT BED TIME
     Route: 065
     Dates: start: 20131004
  20. CODEINE [Concomitant]
     Active Substance: CODEINE
     Route: 065
  21. DOMPERIDONE [Concomitant]
     Active Substance: DOMPERIDONE
     Dosage: BEFORE MEALS
     Route: 065
     Dates: start: 20131010
  22. ESCITALOPRAM [Concomitant]
     Active Substance: ESCITALOPRAM OXALATE
     Dosage: DAILY AT 9 AM
     Route: 065
     Dates: start: 20131004
  23. POLYSPORIN [Concomitant]
     Active Substance: BACITRACIN ZINC\POLYMYXIN B SULFATE
     Dosage: APPLIED TO WOUNDS AT 9 AM AND 9 PM
     Route: 065
     Dates: start: 20131010, end: 20131017
  24. FOLIC ACID. [Concomitant]
     Active Substance: FOLIC ACID
     Route: 065
  25. ANUSOL NOS [Concomitant]
     Active Substance: BALSAM PERU\BENZYL BENZOATE\BISMUTH HYDROXIDE\BISMUTH SUBGALLATE\HYDROCORTISONE ACETATE\ZINC OXIDE
     Dosage: TO PERIANAL AREA AT 9 AM AND 9 PM
     Route: 065
     Dates: start: 20131008, end: 20131015
  26. PANTOPRAZOLE [Concomitant]
     Active Substance: PANTOPRAZOLE SODIUM
     Dosage: BEFORE BREAKFAST
     Route: 065
     Dates: start: 20131005
  27. REMICADE [Suspect]
     Active Substance: INFLIXIMAB
     Indication: CROHN^S DISEASE
     Dosage: 0,2,6 WEEK
     Route: 042
     Dates: start: 20131002
  28. VITAMIN C [Concomitant]
     Active Substance: ASCORBIC ACID
     Route: 065
  29. VITALUX NOS [Concomitant]
     Route: 065
  30. SYNTHROID [Concomitant]
     Active Substance: LEVOTHYROXINE SODIUM
     Route: 065
  31. POTASSIUM [Concomitant]
     Active Substance: POTASSIUM
     Dosage: WITH FOOD
     Route: 065
     Dates: start: 20131006
  32. REMICADE [Suspect]
     Active Substance: INFLIXIMAB
     Indication: CROHN^S DISEASE
     Route: 042
     Dates: start: 20131016
  33. REMICADE [Suspect]
     Active Substance: INFLIXIMAB
     Indication: COLITIS ULCERATIVE
     Route: 042
     Dates: start: 20131016
  34. CALCIUM AND VIT D [Concomitant]
     Active Substance: CALCIUM\VITAMIN D
     Route: 065
  35. PANCRELIPASE. [Concomitant]
     Active Substance: PANCRELIPASE
     Route: 065
  36. MICARDIS [Concomitant]
     Active Substance: TELMISARTAN
     Route: 065
  37. SYNTHROID [Concomitant]
     Active Substance: LEVOTHYROXINE SODIUM
     Dosage: BEFORE BREAKFAST
     Route: 065
     Dates: start: 20131004

REACTIONS (3)
  - Asthenia [Not Recovered/Not Resolved]
  - Dehydration [Not Recovered/Not Resolved]
  - Fall [Not Recovered/Not Resolved]

NARRATIVE: CASE EVENT DATE: 20131002
